FAERS Safety Report 9234585 (Version 1)
Quarter: 2013Q2

REPORT INFORMATION
  Report Type: Spontaneous
  Country: US (occurrence: US)
  Receive Date: 20130416
  Receipt Date: 20130416
  Transmission Date: 20140414
  Serious: No
  Sender: FDA-Public Use
  Company Number: US-PFIZER INC-2013117359

PATIENT
  Age: 60 Year
  Sex: Female

DRUGS (5)
  1. SUTENT [Suspect]
     Indication: CHONDROSARCOMA
     Dosage: 50 MG, CYCLIC
     Dates: start: 20130405
  2. OXYCONTIN [Concomitant]
     Dosage: UNK, AS NEEDED
  3. PERCOCET [Concomitant]
     Dosage: UNK, AS NEEDED
  4. VITAMIN D [Concomitant]
     Indication: SUPPLEMENTATION THERAPY
     Dosage: 800-1200 IU, AS NEEDED
  5. ZOLOFT [Concomitant]
     Indication: ANXIETY
     Dosage: 50 MG, 1X/DAY

REACTIONS (4)
  - Pruritus [Not Recovered/Not Resolved]
  - Flatulence [Not Recovered/Not Resolved]
  - Cough [Not Recovered/Not Resolved]
  - Off label use [Unknown]
